FAERS Safety Report 9432959 (Version 1)
Quarter: 2013Q3

REPORT INFORMATION
  Report Type: Spontaneous
  Country: US (occurrence: US)
  Receive Date: 20130731
  Receipt Date: 20130731
  Transmission Date: 20140515
  Serious: No
  Sender: FDA-Public Use
  Company Number: US-PFIZER INC-2013073337

PATIENT
  Age: 60 Year
  Sex: Female
  Weight: 74.8 kg

DRUGS (3)
  1. PREMARIN [Suspect]
     Indication: VULVOVAGINAL DRYNESS
     Dosage: 1 G, 3X/WEEK, UNK
     Route: 067
  2. PREMARIN [Suspect]
     Dosage: 1 G, 3X/WEEK
     Route: 067
  3. PREMARIN [Suspect]
     Dosage: 1 G, 3X/WEEK
     Route: 067
     Dates: end: 201307

REACTIONS (1)
  - Blood cholesterol increased [Unknown]
